FAERS Safety Report 6103138-6 (Version None)
Quarter: 2009Q1

REPORT INFORMATION
  Report Type: 
  Country: None (occurrence: None)
  Receive Date: 20090305
  Receipt Date: 20090224
  Transmission Date: 20090719
  Serious: Yes (Hospitalization, Other)
  Sender: FDA-Public Use
  Company Number: US-PFIZER INC-2009160939

PATIENT
  Sex: Male

DRUGS (7)
  1. CELEBREX [Suspect]
     Indication: PAIN MANAGEMENT
     Route: 048
  2. BEXTRA [Suspect]
     Indication: PAIN MANAGEMENT
     Dosage: UNK
     Route: 048
     Dates: start: 19770101
  3. COUMADIN [Concomitant]
     Indication: DEEP VEIN THROMBOSIS
     Dosage: 5 MG, 1X/DAY
     Dates: start: 19770101
  4. DYAZIDE [Concomitant]
     Dosage: 31.5 MG, UNK
  5. ASPIRIN [Concomitant]
     Dosage: UNK
  6. ZANTAC [Concomitant]
     Dosage: UNK
  7. VICODIN [Concomitant]
     Dosage: UNK

REACTIONS (2)
  - ACUTE MYOCARDIAL INFARCTION [None]
  - CEREBROVASCULAR ACCIDENT [None]
